FAERS Safety Report 8499386-0 (Version None)
Quarter: 2012Q3

REPORT INFORMATION
  Report Type: 
  Country: None (occurrence: None)
  Receive Date: 20120710
  Receipt Date: 20120704
  Transmission Date: 20120928
  Serious: Yes (Other)
  Sender: FDA-Public Use
  Company Number: PHHY2011MX86622

PATIENT
  Sex: Female

DRUGS (3)
  1. ARAVA [Concomitant]
     Indication: ARTHRITIS
     Dosage: 20 MG, UNK
     Dates: start: 20090101
  2. EXFORGE [Suspect]
     Indication: HYPERTENSION
     Dosage: 1 DF (160 MG VALS AND 10 MG AMLO), DAILY
     Dates: start: 20101018
  3. METFORMIN HCL [Suspect]
     Indication: DIABETES MELLITUS
     Dosage: 2 DF(500 MG METF AND 50 MG VILD) , DAILY

REACTIONS (3)
  - COLD SWEAT [None]
  - DYSPNOEA [None]
  - CHEST DISCOMFORT [None]
